FAERS Safety Report 9492060 (Version 2)
Quarter: 2013Q3

REPORT INFORMATION
  Report Type: Spontaneous
  Country: US (occurrence: US)
  Receive Date: 20130830
  Receipt Date: 20130911
  Transmission Date: 20140515
  Serious: No
  Sender: FDA-Public Use
  Company Number: US-009507513-1308USA011548

PATIENT
  Age: 31 Year
  Sex: Female
  Weight: 93.88 kg

DRUGS (1)
  1. NEXPLANON [Suspect]
     Indication: AMENORRHOEA
     Dosage: UNK
     Route: 059
     Dates: start: 20120724

REACTIONS (2)
  - Device breakage [Unknown]
  - Implant site pain [Not Recovered/Not Resolved]
